FAERS Safety Report 18180533 (Version 2)
Quarter: 2020Q4

REPORT INFORMATION
  Report Type: Report from Study
  Country: CA (occurrence: CA)
  Receive Date: 20200821
  Receipt Date: 20201013
  Transmission Date: 20210113
  Serious: Yes (Hospitalization, Other)
  Sender: FDA-Public Use
  Company Number: CA-GLAXOSMITHKLINE-CA2020AMR161174

PATIENT
  Age: 83 Year
  Sex: Male

DRUGS (5)
  1. MEPOLIZUMAB [Suspect]
     Active Substance: MEPOLIZUMAB
     Indication: ASTHMA
     Dosage: 100 MG, Z, MONTHLY
     Route: 042
     Dates: start: 20170404
  2. SALBUTAMOL SULPHATE [Suspect]
     Active Substance: ALBUTEROL SULFATE
     Indication: PRODUCT USED FOR UNKNOWN INDICATION
     Dosage: UNK
  3. FLUTICASONE FUROATE + VILANTEROL TRIFENATATE [Suspect]
     Active Substance: FLUTICASONE FUROATE\VILANTEROL TRIFENATATE
     Indication: PRODUCT USED FOR UNKNOWN INDICATION
     Dosage: UNK
  4. MOMETASONE [Suspect]
     Active Substance: MOMETASONE
     Indication: PRODUCT USED FOR UNKNOWN INDICATION
     Dosage: UNK
  5. ASPIRIN. [Suspect]
     Active Substance: ASPIRIN
     Indication: PRODUCT USED FOR UNKNOWN INDICATION
     Dosage: UNK

REACTIONS (21)
  - Speech disorder [Unknown]
  - Subdural haematoma [Unknown]
  - Drug hypersensitivity [Unknown]
  - Suture removal [Unknown]
  - Pneumocephalus [Unknown]
  - Fall [Unknown]
  - Gait disturbance [Unknown]
  - Cerebrovascular accident [Unknown]
  - Sinus disorder [Unknown]
  - Dementia Alzheimer^s type [Unknown]
  - Primary familial brain calcification [Unknown]
  - Soft tissue swelling [Unknown]
  - Intracranial mass [Unknown]
  - Chest pain [Unknown]
  - Craniotomy [Unknown]
  - Muscular weakness [Unknown]
  - Cerebral thrombosis [Unknown]
  - Lacunar infarction [Unknown]
  - Brain midline shift [Unknown]
  - Mucosal hypertrophy [Unknown]
  - Cerebral disorder [Unknown]

NARRATIVE: CASE EVENT DATE: 20200811
